FAERS Safety Report 4798311-3 (Version None)
Quarter: 2005Q4

REPORT INFORMATION
  Report Type: 
  Country: None (occurrence: None)
  Receive Date: 20051011
  Receipt Date: 20050930
  Transmission Date: 20060501
  Serious: Yes (Disabling, Other)
  Sender: FDA-Public Use
  Company Number: 2005-08-2128

PATIENT
  Age: 57 Year
  Sex: Male
  Weight: 59 kg

DRUGS (13)
  1. PEG-INTRON [Suspect]
     Indication: HEPATITIS C
     Dosage: 100 MCG QW SUBCUTANEOUS
     Route: 058
     Dates: start: 20050615, end: 20050720
  2. REBETOL [Suspect]
     Indication: HEPATITIS C
     Dosage: 800 MG PO QD ORAL
     Route: 048
     Dates: start: 20050615, end: 20050726
  3. DEPAS TABLETS [Suspect]
     Indication: DEPRESSION
     Dosage: 3 MG PO QD ORAL
     Route: 048
     Dates: start: 20050720, end: 20050726
  4. ROHYPNOL TABLETS [Suspect]
     Indication: DEPRESSION
     Dosage: 4 MG PO QD ORAL
     Route: 048
     Dates: start: 20050720, end: 20050726
  5. LEXOTAN TABLETS [Suspect]
     Indication: DEPRESSION
     Dosage: 5 MG PO PRN ORAL
     Route: 048
     Dates: start: 20050720, end: 20050726
  6. COVERSYL TABLETS [Concomitant]
  7. AMARYL [Concomitant]
  8. LANSOPRAZOLE [Concomitant]
  9. TENORMIN [Concomitant]
  10. CALBLOCK (AZELNIPIDINE) TABLETS [Concomitant]
  11. DOGMATYL CAPSULES [Concomitant]
  12. LUVOX [Concomitant]
  13. BAYASPIRIN (ASPIRIN) TABLETS [Concomitant]

REACTIONS (3)
  - DIZZINESS [None]
  - DYSARTHRIA [None]
  - PARKINSONISM [None]
